FAERS Safety Report 10047399 (Version 1)
Quarter: 2014Q1

REPORT INFORMATION
  Report Type: Spontaneous
  Country: US (occurrence: None)
  Receive Date: 20140327
  Receipt Date: 20140327
  Transmission Date: 20141002
  Serious: Yes (Other)
  Sender: FDA-Public Use
  Company Number: 00617

PATIENT
  Age: 72 Year
  Sex: Female

DRUGS (1)
  1. NUAGE NATRUM PHOS [Suspect]
     Indication: ANTACID THERAPY
     Dosage: 4 TABLETS ONCE

REACTIONS (6)
  - Dehydration [None]
  - Asthenia [None]
  - Dyspnoea [None]
  - Skin disorder [None]
  - Skin discolouration [None]
  - Vein disorder [None]
